FAERS Safety Report 4407878-6 (Version None)
Quarter: 2004Q3

REPORT INFORMATION
  Report Type: 
  Country: None (occurrence: None)
  Receive Date: 20040721
  Receipt Date: 20040701
  Transmission Date: 20050211
  Serious: Yes (Other)
  Sender: FDA-Public Use
  Company Number: USA040568631

PATIENT
  Age: 47 Year
  Sex: Male
  Weight: 109 kg

DRUGS (14)
  1. XIGRIS [Suspect]
     Indication: SEPSIS
     Dosage: 24 UG/KG/HR
     Dates: start: 20040516, end: 20040519
  2. IMIPENEM [Concomitant]
  3. NORVASC [Concomitant]
  4. PLETAL [Concomitant]
  5. CIPROFLOXACIN [Concomitant]
  6. ZOSYN [Concomitant]
  7. LABETALOL HCL [Concomitant]
  8. DIPRIVAN [Concomitant]
  9. FLAGYL [Concomitant]
  10. FLUCONAZOLE [Concomitant]
  11. ATIVAN [Concomitant]
  12. MORPHINE [Concomitant]
  13. ASPIRIN [Concomitant]
  14. AVALIDE [Concomitant]

REACTIONS (5)
  - BLOOD URINE [None]
  - PROTEIN URINE [None]
  - PYREXIA [None]
  - RASH [None]
  - URINE OUTPUT DECREASED [None]
